FAERS Safety Report 8236998-3 (Version None)
Quarter: 2012Q1

REPORT INFORMATION
  Report Type: 
  Country: None (occurrence: None)
  Receive Date: 20120326
  Receipt Date: 20120326
  Transmission Date: 20120608
  Serious: Yes (Death)
  Sender: FDA-Public Use
  Company Number: None

PATIENT
  Sex: Male

DRUGS (1)
  1. ACTOS [Suspect]
     Dosage: THINK IT WAS 50 MG DAILY PO
     Route: 048

REACTIONS (2)
  - METASTASES TO LIVER [None]
  - METASTATIC GASTRIC CANCER [None]
